FAERS Safety Report 5571697-8 (Version None)
Quarter: 2007Q4

REPORT INFORMATION
  Report Type: 
  Country: None (occurrence: None)
  Receive Date: 20071221
  Receipt Date: 20071217
  Transmission Date: 20080405
  Serious: Yes (Death)
  Sender: FDA-Public Use
  Company Number: A0668118A

PATIENT
  Age: 58 Year
  Sex: Male

DRUGS (3)
  1. AVANDIA [Suspect]
     Dosage: 4MG TWICE PER DAY
     Route: 048
     Dates: end: 20030602
  2. PRILOSEC [Concomitant]
  3. ASPIRIN [Concomitant]

REACTIONS (8)
  - ARTERIOSCLEROSIS CORONARY ARTERY [None]
  - CARDIOMEGALY [None]
  - CYANOSIS [None]
  - MYOCARDIAL ISCHAEMIA [None]
  - OBESITY [None]
  - PNEUMOCONIOSIS [None]
  - PULMONARY CONGESTION [None]
  - PULMONARY OEDEMA [None]
